FAERS Safety Report 9322073 (Version 1)
Quarter: 2013Q2

REPORT INFORMATION
  Report Type: Spontaneous
  Country: US (occurrence: None)
  Receive Date: 20130528
  Receipt Date: 20130528
  Transmission Date: 20140414
  Serious: Yes (Other)
  Sender: FDA-Public Use
  Company Number: 2013P006216

PATIENT
  Age: 64 Year
  Sex: Male

DRUGS (1)
  1. HEPARIN [Suspect]
     Indication: SURGERY

REACTIONS (9)
  - Shock [None]
  - Mental status changes [None]
  - Sepsis [None]
  - Hyponatraemia [None]
  - Hyperkalaemia [None]
  - Heparin-induced thrombocytopenia [None]
  - Adrenal haemorrhage [None]
  - Venous thrombosis [None]
  - Arterial thrombosis [None]
